FAERS Safety Report 22664843 (Version 9)
Quarter: 2024Q2

REPORT INFORMATION
  Report Type: Report from Study
  Country: CA (occurrence: CA)
  Receive Date: 20230703
  Receipt Date: 20240626
  Transmission Date: 20240715
  Serious: Yes (Hospitalization, Other)
  Sender: FDA-Public Use
  Company Number: CA-OTSUKA-2023_015567

PATIENT
  Sex: Female

DRUGS (1)
  1. ARIPIPRAZOLE [Suspect]
     Active Substance: ARIPIPRAZOLE
     Indication: Product used for unknown indication
     Dosage: 400 MG, EVERY 3 WEEKS (EVERY 21 DAYS)
     Route: 030

REACTIONS (15)
  - End stage renal disease [Unknown]
  - Chronic kidney disease [Recovering/Resolving]
  - Peripheral swelling [Unknown]
  - Blood glucose abnormal [Recovered/Resolved]
  - Anaemia [Unknown]
  - Vomiting [Unknown]
  - Insomnia [Unknown]
  - Malaise [Unknown]
  - Depression [Unknown]
  - Asthenia [Unknown]
  - Decreased appetite [Unknown]
  - Fatigue [Recovered/Resolved]
  - Product dose omission issue [Unknown]
  - Inappropriate schedule of product administration [Recovered/Resolved]
  - Product availability issue [Recovered/Resolved]
